FAERS Safety Report 7018039-9 (Version None)
Quarter: 2010Q3

REPORT INFORMATION
  Report Type: 
  Country: None (occurrence: None)
  Receive Date: 20100928
  Receipt Date: 20100920
  Transmission Date: 20110219
  Serious: Yes (Other)
  Sender: FDA-Public Use
  Company Number: FR-ASTRAZENECA-2010SE44333

PATIENT
  Age: 60 Year
  Sex: Male

DRUGS (3)
  1. CRESTOR [Suspect]
     Indication: HYPERCHOLESTEROLAEMIA
     Route: 048
     Dates: start: 20070701, end: 20100901
  2. TEMERIT [Concomitant]
     Indication: HYPERTENSION
     Route: 065
  3. TAREG [Concomitant]
     Indication: HYPERTENSION
     Route: 065

REACTIONS (1)
  - TENDON RUPTURE [None]
